FAERS Safety Report 7415279-1 (Version None)
Quarter: 2011Q2

REPORT INFORMATION
  Report Type: 
  Country: None (occurrence: None)
  Receive Date: 20110414
  Receipt Date: 20110331
  Transmission Date: 20111010
  Serious: Yes (Hospitalization)
  Sender: FDA-Public Use
  Company Number: US-JNJFOC-20110303779

PATIENT
  Sex: Male
  Weight: 50.08 kg

DRUGS (4)
  1. REMICADE [Suspect]
     Indication: CROHN'S DISEASE
     Route: 042
  2. IRON [Concomitant]
  3. VITAMIN D [Concomitant]
  4. THALIDOMIDE [Concomitant]

REACTIONS (2)
  - CROHN'S DISEASE [None]
  - DEHYDRATION [None]
